FAERS Safety Report 9065863 (Version 1)
Quarter: 2013Q1

REPORT INFORMATION
  Report Type: Report from Study
  Country: US (occurrence: US)
  Receive Date: 20130130
  Receipt Date: 20130130
  Transmission Date: 20140127
  Serious: No
  Sender: FDA-Public Use
  Company Number: US-ABBOTT-12P-163-0976356-00

PATIENT
  Age: 51 Year
  Sex: Female

DRUGS (10)
  1. HUMIRA [Suspect]
     Indication: RHEUMATOID ARTHRITIS
     Dates: start: 20120817
  2. SULFASALAZINE [Concomitant]
     Indication: PRODUCT USED FOR UNKNOWN INDICATION
     Dosage: 3 TABS IN AM, 3 TABS IN PM
  3. PREDNISONE [Concomitant]
     Indication: INFLAMMATION
  4. BONIVA [Concomitant]
     Indication: PRODUCT USED FOR UNKNOWN INDICATION
  5. MELOXICAM [Concomitant]
     Indication: PRODUCT USED FOR UNKNOWN INDICATION
  6. TOPROL [Concomitant]
     Indication: HYPERTENSION
     Dosage: 1 TAB IN AM, 1 TAB IN PM
  7. LISINOPRIL [Concomitant]
     Indication: HYPERTENSION
     Dosage: 1 TAB IN AM, 1 TAB IN PM
  8. PRILOSEC [Concomitant]
     Indication: GASTROOESOPHAGEAL REFLUX DISEASE
  9. WOMEN^S ONE A DAY VITAMIN [Concomitant]
     Indication: PRODUCT USED FOR UNKNOWN INDICATION
     Dosage: DAILY
  10. CITRACAL + D [Concomitant]
     Indication: PRODUCT USED FOR UNKNOWN INDICATION
     Dosage: DAILY

REACTIONS (2)
  - Injection site pain [Recovered/Resolved]
  - Injection site haemorrhage [Recovered/Resolved]
